FAERS Safety Report 9213521 (Version 1)
Quarter: 2013Q2

REPORT INFORMATION
  Report Type: Spontaneous
  Country: AU (occurrence: AU)
  Receive Date: 20130405
  Receipt Date: 20130405
  Transmission Date: 20140414
  Serious: Yes (Death)
  Sender: FDA-Public Use
  Company Number: AU-PURDUE-USA-2013-0100496

PATIENT
  Age: 29 Year
  Sex: Female

DRUGS (4)
  1. OXYCONTIN TABLETS [Suspect]
     Indication: BACK PAIN
     Dosage: UNKNOWN
     Route: 048
  2. OXYCONTIN TABLETS [Suspect]
     Indication: CHEST PAIN
  3. ENDONE [Suspect]
     Indication: BACK PAIN
     Dosage: UNKNOWN
  4. ENDONE [Suspect]
     Indication: CHEST PAIN

REACTIONS (3)
  - Pneumonia aspiration [Fatal]
  - Myocarditis bacterial [Fatal]
  - Overdose [Fatal]
